FAERS Safety Report 13586294 (Version 1)
Quarter: 2017Q2

REPORT INFORMATION
  Report Type: Report from Study
  Country: US (occurrence: US)
  Receive Date: 20170526
  Receipt Date: 20170526
  Transmission Date: 20170830
  Serious: Yes (Other)
  Sender: FDA-Public Use
  Company Number: US-UCBSA-063665

PATIENT
  Age: 41 Year
  Sex: Female

DRUGS (19)
  1. ERGOCALCIFEROL. [Concomitant]
     Active Substance: ERGOCALCIFEROL
     Indication: VITAMIN D DEFICIENCY
     Dosage: 50,000 UNITS
     Route: 048
     Dates: start: 20120416
  2. HUMIRA [Concomitant]
     Active Substance: ADALIMUMAB
     Indication: CROHN^S DISEASE
     Dosage: STOPPED PRIOR TO SURGERY
     Dates: start: 201004, end: 201106
  3. HUMIRA [Concomitant]
     Active Substance: ADALIMUMAB
     Dosage: LMD STOPPED HUMIRA AFTER BREAST CANCER DIAGNOSIS
     Dates: start: 201310, end: 201407
  4. OXYCODONE [Concomitant]
     Active Substance: OXYCODONE
     Indication: PAIN
     Dosage: 10MG Q6H
     Route: 048
     Dates: start: 20120425
  5. TYLENOL EXTRA STRENGTH [Concomitant]
     Active Substance: ACETAMINOPHEN
     Indication: PAIN
     Dosage: 500-1000 MG Q6H PRN
     Route: 048
  6. LOPERAMIDE [Concomitant]
     Active Substance: LOPERAMIDE
     Indication: PRODUCT USED FOR UNKNOWN INDICATION
     Dosage: UNK
     Dates: start: 2014
  7. DIPHENOXYLATE/ATROPINE [Concomitant]
     Active Substance: ATROPINE\DIPHENOXYLATE
     Indication: PRODUCT USED FOR UNKNOWN INDICATION
  8. CERTOLIZUMAB PEGOL CD [Suspect]
     Active Substance: CERTOLIZUMAB PEGOL
     Indication: CROHN^S DISEASE
     Dosage: 400 MG, EV 4 WEEKS
     Route: 058
     Dates: start: 20120503
  9. HYDROCODONE-ACETAMINOPHEN [Concomitant]
     Active Substance: ACETAMINOPHEN\HYDROCODONE
     Indication: PAIN
     Dosage: 5-500MG 1 TAB Q4H PRN
     Route: 048
     Dates: start: 20120222
  10. NIFEDIPINE. [Concomitant]
     Active Substance: NIFEDIPINE
     Indication: ANAL FISSURE
     Dosage: PLASTIBASE APPLY TO ANUS
     Dates: start: 20110822
  11. PEPTO-BISMOL [Concomitant]
     Active Substance: BISMUTH SUBSALICYLATE
     Indication: GASTROINTESTINAL DISORDER
  12. HUMIRA [Concomitant]
     Active Substance: ADALIMUMAB
     Dosage: , 40 MG, WEEKLY (QW), ACHIEVED SATISFACTORY RESPONSE INITIALLY, BUT LOST IT OVER TIME
     Dates: start: 20110706, end: 201204
  13. ACETAMINOPHEN. [Concomitant]
     Active Substance: ACETAMINOPHEN
     Indication: CROHN^S DISEASE
  14. CHOLESTYRAMINE. [Concomitant]
     Active Substance: CHOLESTYRAMINE
     Indication: DIARRHOEA
     Dosage: 4G/SCOOP, ONE SCOOP BID
     Route: 048
     Dates: start: 20110627
  15. PEPTO-BISMOL [Concomitant]
     Active Substance: BISMUTH SUBSALICYLATE
     Indication: CROHN^S DISEASE
     Dosage: 2 TAB PRN
     Route: 048
     Dates: start: 2010
  16. PEPTO-BISMOL [Concomitant]
     Active Substance: BISMUTH SUBSALICYLATE
     Indication: GRANULOMA ANNULARE
  17. BETAMETHASONE DIPROPIONATE. [Concomitant]
     Active Substance: BETAMETHASONE DIPROPIONATE
     Indication: RASH
     Dosage: 0.05%
     Route: 061
     Dates: start: 2012
  18. MIRAPEX [Concomitant]
     Active Substance: PRAMIPEXOLE DIHYDROCHLORIDE
     Indication: RESTLESS LEGS SYNDROME
     Dosage: 0.5 MG, HS
     Route: 048
     Dates: start: 2012
  19. PREDNISONE. [Concomitant]
     Active Substance: PREDNISONE
     Indication: CROHN^S DISEASE
     Dosage: DAILY DOSE: 5MG
     Route: 048
     Dates: start: 20120123

REACTIONS (1)
  - Granuloma annulare [Recovered/Resolved]

NARRATIVE: CASE EVENT DATE: 201202
